FAERS Safety Report 12613881 (Version 1)
Quarter: 2016Q3

REPORT INFORMATION
  Report Type: Spontaneous
  Country: IT (occurrence: IT)
  Receive Date: 20160802
  Receipt Date: 20160802
  Transmission Date: 20161109
  Serious: Yes (Hospitalization, Other)
  Sender: FDA-Public Use
  Company Number: IT-ALEMBIC PHARMACUETICALS LIMITED-2016SCAL000574

PATIENT

DRUGS (8)
  1. TENOFOVIR DISOPROXIL FUMARATE. [Interacting]
     Active Substance: TENOFOVIR DISOPROXIL FUMARATE
     Indication: CHRONIC HEPATITIS B
     Dosage: 245 MG, UNK; NO. OF SEPARATE DOSAGES:NA - NO. OF UNITS PER INTERVAL: 1 - INTERVAL: DAY
     Dates: start: 201303, end: 201401
  2. PAROXETINE. [Interacting]
     Active Substance: PAROXETINE
     Indication: INSOMNIA
  3. PAROXETINE. [Interacting]
     Active Substance: PAROXETINE
     Indication: DEPRESSED MOOD
     Dosage: 20 MG, UNK; NO. OF SEPARATE DOSAGES: NA - NO. OF UNITS PER INTERVAL: 1 - INTERVAL: DAY
     Dates: start: 201311
  4. VENLAFAXINE HYDROCHLORIDE. [Suspect]
     Active Substance: VENLAFAXINE HYDROCHLORIDE
     Indication: INSOMNIA
     Dosage: 150 MG, UNK; NO. OF SEPARATE DOSAGES:NA - NO. OF UNITS PER INTERVAL: 1 - INTERVAL: DAY
     Dates: start: 201311
  5. ZOLPIDEM [Interacting]
     Active Substance: ZOLPIDEM\ZOLPIDEM TARTRATE
     Indication: INSOMNIA
     Dosage: 10 MG, UNK; NO. OF SEPARATE DOSAGES:NA - NO. OF UNITS PER INTERVAL: 1 - INTERVAL: DAY
     Dates: start: 201311
  6. ZOLPIDEM [Interacting]
     Active Substance: ZOLPIDEM\ZOLPIDEM TARTRATE
     Indication: DEPRESSED MOOD
  7. VENLAFAXINE HYDROCHLORIDE. [Interacting]
     Active Substance: VENLAFAXINE HYDROCHLORIDE
     Indication: DEPRESSED MOOD
  8. INTERFERON [Concomitant]
     Active Substance: INTERFERON
     Indication: PRODUCT USED FOR UNKNOWN INDICATION
     Dosage: UNK
     Dates: start: 200309

REACTIONS (2)
  - Drug interaction [Recovering/Resolving]
  - Hepatitis B [Recovering/Resolving]
